FAERS Safety Report 9165548 (Version 2)
Quarter: 2013Q1

REPORT INFORMATION
  Report Type: Spontaneous
  Country: BR (occurrence: BR)
  Receive Date: 20130315
  Receipt Date: 20130320
  Transmission Date: 20140127
  Serious: Yes (Other)
  Sender: FDA-Public Use
  Company Number: PHHY2013BR025157

PATIENT
  Sex: Male

DRUGS (3)
  1. FORASEQ [Suspect]
     Indication: ASTHMA
     Dosage: ONE INHALATION DAILY
  2. SPIRIVA [Concomitant]
     Indication: ASTHMA
     Dosage: ONE INHALATION DAILY
  3. FINASTERIDE [Concomitant]
     Indication: PROSTATOMEGALY
     Dosage: 1 DF, QD
     Route: 048

REACTIONS (3)
  - Age-related macular degeneration [Not Recovered/Not Resolved]
  - Oxygen saturation decreased [Recovering/Resolving]
  - Cataract [Unknown]
